FAERS Safety Report 11781899 (Version 6)
Quarter: 2016Q1

REPORT INFORMATION
  Report Type: Spontaneous
  Country: US (occurrence: US)
  Receive Date: 20151126
  Receipt Date: 20160226
  Transmission Date: 20160525
  Serious: Yes (Other)
  Sender: FDA-Public Use
  Company Number: US-ASTRAZENECA-2015SF12401

PATIENT
  Age: 21738 Day
  Sex: Male
  Weight: 121.6 kg

DRUGS (8)
  1. PROCARDIA XL [Concomitant]
     Active Substance: NIFEDIPINE
     Route: 048
  2. ISOSORBIDE MONONITRATE. [Concomitant]
     Active Substance: ISOSORBIDE MONONITRATE
     Route: 048
  3. BRILINTA [Suspect]
     Active Substance: TICAGRELOR
     Indication: ACUTE CORONARY SYNDROME
     Route: 048
  4. LISINOPRIL. [Suspect]
     Active Substance: LISINOPRIL
     Route: 048
  5. ASPIR-LOW [Concomitant]
     Active Substance: ASPIRIN
     Route: 048
  6. METOPROLOL TARTRATE. [Concomitant]
     Active Substance: METOPROLOL TARTRATE
     Route: 048
  7. ATORVASTATIN [Concomitant]
     Active Substance: ATORVASTATIN
     Route: 048
  8. HYDROCHLOROTHIAZIDE. [Concomitant]
     Active Substance: HYDROCHLOROTHIAZIDE
     Route: 048

REACTIONS (12)
  - Anxiety [Unknown]
  - Hypoacusis [Unknown]
  - Dyspnoea [Recovering/Resolving]
  - Blood urine present [Recovered/Resolved]
  - Contusion [Unknown]
  - Myocardial infarction [Unknown]
  - Back pain [Unknown]
  - Headache [Unknown]
  - Haemorrhage [Unknown]
  - Fatigue [Unknown]
  - Depressed mood [Unknown]
  - Flank pain [Unknown]

NARRATIVE: CASE EVENT DATE: 20151113
